FAERS Safety Report 7410839-6 (Version None)
Quarter: 2011Q2

REPORT INFORMATION
  Report Type: 
  Country: None (occurrence: None)
  Receive Date: 20110413
  Receipt Date: 20110331
  Transmission Date: 20111010
  Serious: Yes (Life-Threatening, Hospitalization)
  Sender: FDA-Public Use
  Company Number: US-RANBAXY-2011US-42876

PATIENT

DRUGS (2)
  1. CLINDAMYCIN [Suspect]
     Indication: TOOTH INFECTION
     Dosage: UNK, UNK
     Route: 048
     Dates: start: 20080501, end: 20080601
  2. TIMOPTIC [Concomitant]
     Indication: PRODUCT USED FOR UNKNOWN INDICATION
     Route: 047

REACTIONS (12)
  - PNEUMONIA [None]
  - HEART VALVE INCOMPETENCE [None]
  - HEPATIC ENZYME INCREASED [None]
  - DIARRHOEA [None]
  - RENAL FAILURE [None]
  - ATELECTASIS [None]
  - SEPSIS [None]
  - HYPOVOLAEMIC SHOCK [None]
  - HEPATIC CYST [None]
  - CLOSTRIDIUM DIFFICILE COLITIS [None]
  - MUSCLE ATROPHY [None]
  - IMMUNE SYSTEM DISORDER [None]
